FAERS Safety Report 5845776-1 (Version None)
Quarter: 2008Q3

REPORT INFORMATION
  Report Type: 
  Country: None (occurrence: None)
  Receive Date: 20080814
  Receipt Date: 20080728
  Transmission Date: 20090109
  Serious: No
  Sender: FDA-Public Use
  Company Number: US-BOEHRINGER INGELHEIM GMBH, GERMANY-2008-BP-12191BP

PATIENT
  Age: 54 Year
  Sex: Male

DRUGS (4)
  1. FLOMAX [Suspect]
     Indication: BENIGN PROSTATIC HYPERPLASIA
     Route: 048
     Dates: start: 20020101, end: 20080701
  2. PROSCAR [Suspect]
     Indication: BENIGN PROSTATIC HYPERPLASIA
     Route: 048
     Dates: start: 20020101, end: 20080701
  3. ENALAPRIL [Concomitant]
  4. INHALERS [Concomitant]

REACTIONS (2)
  - DIZZINESS [None]
  - HYPOTENSION [None]
